FAERS Safety Report 18615105 (Version 1)
Quarter: 2020Q4

REPORT INFORMATION
  Report Type: Report from Study
  Country: MX (occurrence: MX)
  Receive Date: 20201214
  Receipt Date: 20201214
  Transmission Date: 20210114
  Serious: Yes (Other)
  Sender: FDA-Public Use
  Company Number: MX-TAKEDA-2020TUS057532

PATIENT
  Age: 50 Year
  Sex: Female

DRUGS (1)
  1. VORTIOXETINE. [Suspect]
     Active Substance: VORTIOXETINE
     Indication: DEPRESSION
     Dosage: UNK, Q12H
     Route: 048

REACTIONS (2)
  - Suicidal ideation [Unknown]
  - Inappropriate schedule of product administration [Unknown]
